FAERS Safety Report 4554254-1 (Version None)
Quarter: 2004Q4

REPORT INFORMATION
  Report Type: 
  Country: None (occurrence: None)
  Receive Date: 20041227
  Receipt Date: 20041123
  Transmission Date: 20050328
  Serious: Yes (Hospitalization)
  Sender: FDA-Public Use
  Company Number: 04P-163-0281389-00

PATIENT
  Age: 55 Year
  Sex: Female
  Weight: 78.4723 kg

DRUGS (4)
  1. HUMIRA [Suspect]
     Indication: RHEUMATOID ARTHRITIS
     Dosage: 40 MG, 1 IN 2 WK, SUBCUTANEOUS
     Route: 058
     Dates: start: 20040801
  2. NAPROXEN [Concomitant]
  3. TRAMADOL HCL [Concomitant]
  4. PREDNISONE [Concomitant]

REACTIONS (4)
  - DEHYDRATION [None]
  - GASTROENTERITIS [None]
  - PYREXIA [None]
  - URINARY TRACT INFECTION [None]
